FAERS Safety Report 6047261 (Version 5)
Quarter: 2025Q3

REPORT INFORMATION
  Report Type: Spontaneous
  Country: EU (occurrence: EU)
  Receive Date: 20060517
  Receipt Date: 20250813
  Transmission Date: 20251021
  Serious: Yes (Death, Life-Threatening, Hospitalization)
  Sender: MERCK SHARP & DOHME LLC
  Company Number: EU-MERCK-0605AUT00010

PATIENT
  Age: 49 Year
  Sex: Female
  Weight: 45 kg

DRUGS (11)
  1. CANCIDAS [Suspect]
     Active Substance: CASPOFUNGIN ACETATE
     Indication: Aspergillus infection
     Dosage: DOSE DESCRIPTION : 50 MG, QD?DAILY DOSE : 50 MILLIGRAM
     Route: 041
     Dates: start: 20060416, end: 20060420
  2. VORICONAZOLE [Concomitant]
     Active Substance: VORICONAZOLE
     Dosage: DOSE DESCRIPTION : 300 MG, QD?DAILY DOSE : 300 MILLIGRAM
     Dates: start: 20060420, end: 20060420
  3. VORICONAZOLE [Concomitant]
     Active Substance: VORICONAZOLE
     Dosage: DOSE DESCRIPTION : 200 MG, BID?DAILY DOSE : 400 MILLIGRAM
     Dates: start: 20060421, end: 20060501
  4. TAZOBACTAM [Concomitant]
     Active Substance: TAZOBACTAM
     Dosage: DOSE DESCRIPTION : 4.0/5.0
     Dates: start: 20060408, end: 20060414
  5. VANCOMYCIN [Concomitant]
     Active Substance: VANCOMYCIN
     Dates: start: 20060412, end: 20060501
  6. FLUCONAZOLE [Concomitant]
     Active Substance: FLUCONAZOLE
     Dosage: DOSE DESCRIPTION : 400 MG, QD?DAILY DOSE : 400 MILLIGRAM
     Dates: start: 20060414, end: 20060414
  7. FLUCONAZOLE [Concomitant]
     Active Substance: FLUCONAZOLE
     Dosage: DOSE DESCRIPTION : 200 MG, QD?DAILY DOSE : 200 MILLIGRAM
     Dates: start: 20060415, end: 20060416
  8. MEROPENEM [Concomitant]
     Active Substance: MEROPENEM
     Dosage: DOSE DESCRIPTION : 500 MG, TID?DAILY DOSE : 1500 MILLIGRAM
     Dates: start: 20060414, end: 20060501
  9. CIPROFLOXACIN [Concomitant]
     Active Substance: CIPROFLOXACIN
     Dates: start: 20060418, end: 20060418
  10. CIPROFLOXACIN [Concomitant]
     Active Substance: CIPROFLOXACIN
     Dates: start: 20060419, end: 20060501
  11. GANCICLOVIR [Concomitant]
     Active Substance: GANCICLOVIR

REACTIONS (3)
  - Drug resistance [Unknown]
  - Systemic mycosis [Fatal]
  - Septic shock [Fatal]

NARRATIVE: CASE EVENT DATE: 20060408
